FAERS Safety Report 11653833 (Version 4)
Quarter: 2015Q4

REPORT INFORMATION
  Report Type: Spontaneous
  Country: US (occurrence: US)
  Receive Date: 20151022
  Receipt Date: 20151028
  Transmission Date: 20160304
  Serious: No
  Sender: FDA-Public Use
  Company Number: CHPA2015US012464

PATIENT
  Age: 62 Year
  Sex: Female

DRUGS (1)
  1. VOLTAREN [Suspect]
     Active Substance: DICLOFENAC SODIUM
     Indication: PRODUCT USED FOR UNKNOWN INDICATION
     Dosage: UNK
     Route: 061
     Dates: start: 20151015

REACTIONS (6)
  - Swelling face [Unknown]
  - Rash pruritic [Unknown]
  - Eye swelling [Unknown]
  - Jaw disorder [Unknown]
  - Accidental exposure to product [Unknown]
  - Feeling hot [Unknown]

NARRATIVE: CASE EVENT DATE: 20151015
